FAERS Safety Report 18959448 (Version 1)
Quarter: 2021Q1

REPORT INFORMATION
  Report Type: Spontaneous
  Country: DE (occurrence: DE)
  Receive Date: 20210302
  Receipt Date: 20210302
  Transmission Date: 20210420
  Serious: Yes (Hospitalization)
  Sender: FDA-Public Use
  Company Number: DE-BAYER-2021-084119

PATIENT
  Sex: Female

DRUGS (2)
  1. CIPROBAY [CIPROFLOXACIN] [Suspect]
     Active Substance: CIPROFLOXACIN
     Indication: DIVERTICULITIS
     Dates: start: 2018
  2. CLONT [METRONIDAZOLE] [Suspect]
     Active Substance: METRONIDAZOLE
     Dates: start: 2018

REACTIONS (4)
  - Depression [Unknown]
  - Neuralgia [Not Recovered/Not Resolved]
  - Pain in extremity [Not Recovered/Not Resolved]
  - Myalgia [Not Recovered/Not Resolved]

NARRATIVE: CASE EVENT DATE: 2019
